FAERS Safety Report 25206570 (Version 1)
Quarter: 2025Q2

REPORT INFORMATION
  Report Type: Spontaneous
  Country: US (occurrence: US)
  Receive Date: 20250417
  Receipt Date: 20250417
  Transmission Date: 20250717
  Serious: No
  Sender: CIPLA
  Company Number: US-CIPLA LTD.-2025US04318

PATIENT

DRUGS (1)
  1. LANREOTIDE ACETATE [Suspect]
     Active Substance: LANREOTIDE ACETATE
     Indication: Product used for unknown indication
     Route: 065

REACTIONS (2)
  - Product dose omission issue [Unknown]
  - Device safety feature issue [Unknown]

NARRATIVE: CASE EVENT DATE: 20250402
